FAERS Safety Report 9532758 (Version 1)
Quarter: 2013Q3

REPORT INFORMATION
  Report Type: Spontaneous
  Country: US (occurrence: US)
  Receive Date: 20130918
  Receipt Date: 20130918
  Transmission Date: 20140515
  Serious: No
  Sender: FDA-Public Use
  Company Number: US-PURDUE-USA-2011-0076399

PATIENT
  Age: 47 Year
  Sex: Female

DRUGS (3)
  1. BUTRANS [Suspect]
     Indication: PAIN
     Dosage: 20 MCG, Q1H
     Route: 062
  2. BUTRANS [Suspect]
     Dosage: 10 MCG, Q1H
     Route: 062
  3. METHADONE [Concomitant]
     Indication: PAIN
     Dosage: 30 MG, DAILY PRN

REACTIONS (3)
  - Extra dose administered [Unknown]
  - Drug withdrawal syndrome [Unknown]
  - Inadequate analgesia [Unknown]
